FAERS Safety Report 12493293 (Version 3)
Quarter: 2016Q3

REPORT INFORMATION
  Report Type: Spontaneous
  Country: JP (occurrence: JP)
  Receive Date: 20160623
  Receipt Date: 20160826
  Transmission Date: 20161109
  Serious: Yes (Other)
  Sender: FDA-Public Use
  Company Number: JP-ASTELLAS-2016US024051

PATIENT
  Age: 65 Year
  Sex: Female

DRUGS (10)
  1. MUCOSTA [Concomitant]
     Active Substance: REBAMIPIDE
     Indication: LUNG ADENOCARCINOMA
     Route: 048
     Dates: start: 20160306
  2. DECADRON [Concomitant]
     Active Substance: DEXAMETHASONE
     Dosage: GRADUAL DECREASE FROM 4MG, UNKNOWN FREQ.
     Route: 048
     Dates: start: 2016, end: 2016
  3. TARCEVA [Suspect]
     Active Substance: ERLOTINIB HYDROCHLORIDE
     Indication: LUNG ADENOCARCINOMA
     Route: 048
     Dates: start: 20160316, end: 20160530
  4. TARCEVA [Suspect]
     Active Substance: ERLOTINIB HYDROCHLORIDE
     Indication: LUNG NEOPLASM MALIGNANT
     Route: 048
     Dates: start: 20160602
  5. LYRICA [Concomitant]
     Active Substance: PREGABALIN
     Indication: LUNG ADENOCARCINOMA
     Route: 048
     Dates: start: 20160306
  6. AMITIZA [Concomitant]
     Active Substance: LUBIPROSTONE
     Indication: LUNG ADENOCARCINOMA
     Route: 048
     Dates: start: 20160502
  7. RANMARK [Concomitant]
     Active Substance: DENOSUMAB
     Indication: LUNG ADENOCARCINOMA
     Dosage: UNK UNK, MONTHLY
     Route: 058
     Dates: start: 20160310
  8. LOXONIN [Concomitant]
     Active Substance: LOXOPROFEN SODIUM
     Indication: LUNG ADENOCARCINOMA
     Route: 048
     Dates: start: 20160306, end: 20160808
  9. DECADRON [Concomitant]
     Active Substance: DEXAMETHASONE
     Indication: LUNG ADENOCARCINOMA
     Dosage: THE FRACTIONATION DOSE FREQUENCY IS UNCERTAIN (4 MG)
     Route: 048
     Dates: start: 20160323, end: 2016
  10. OXYCONTIN [Concomitant]
     Active Substance: OXYCODONE HYDROCHLORIDE
     Indication: LUNG ADENOCARCINOMA
     Route: 048
     Dates: start: 20160307

REACTIONS (1)
  - Neutrophil count decreased [Recovered/Resolved]

NARRATIVE: CASE EVENT DATE: 20160530
